FAERS Safety Report 16153265 (Version 2)
Quarter: 2019Q2

REPORT INFORMATION
  Report Type: Spontaneous
  Country: US (occurrence: US)
  Receive Date: 20190403
  Receipt Date: 20190627
  Transmission Date: 20190711
  Serious: No
  Sender: FDA-Public Use
  Company Number: US-BIOGEN-2019BI00718628

PATIENT
  Age: 47 Year
  Sex: Male

DRUGS (1)
  1. TYSABRI [Suspect]
     Active Substance: NATALIZUMAB
     Indication: MULTIPLE SCLEROSIS
     Route: 065
     Dates: start: 20181015

REACTIONS (5)
  - Aphasia [Unknown]
  - Mental impairment [Unknown]
  - Cognitive disorder [Unknown]
  - Balance disorder [Unknown]
  - Dysgraphia [Unknown]

NARRATIVE: CASE EVENT DATE: 20190327
